FAERS Safety Report 12630101 (Version 1)
Quarter: 2016Q3

REPORT INFORMATION
  Report Type: Spontaneous
  Country: BR (occurrence: BR)
  Receive Date: 20160808
  Receipt Date: 20160808
  Transmission Date: 20161109
  Serious: Yes (Hospitalization)
  Sender: FDA-Public Use
  Company Number: BR-FRESENIUS KABI-FK201605158

PATIENT

DRUGS (2)
  1. GLUCAGON (MANUFACTURER UNKNOWN) [Suspect]
     Active Substance: GLUCAGON
     Indication: SOMATOTROPIN STIMULATION TEST
     Route: 030
  2. GLUCAGON (MANUFACTURER UNKNOWN) [Suspect]
     Active Substance: GLUCAGON
     Indication: ACTH STIMULATION TEST

REACTIONS (3)
  - Off label use [Unknown]
  - Hypotension [Unknown]
  - Seizure [Unknown]
